FAERS Safety Report 9555843 (Version 1)
Quarter: 2013Q3

REPORT INFORMATION
  Report Type: Spontaneous
  Country: US (occurrence: None)
  Receive Date: 20130925
  Receipt Date: 20130925
  Transmission Date: 20140515
  Serious: Yes (Other)
  Sender: FDA-Public Use
  Company Number: None

PATIENT
  Age: 55 Year
  Sex: Male
  Weight: 151.96 kg

DRUGS (3)
  1. BUPRENORPHINE [Suspect]
     Indication: PAIN
     Dosage: TAKE 1 TABLET TAKEN UNDER THE TONGUE
     Dates: start: 20130905, end: 20130924
  2. BUPRENORPHINE [Suspect]
     Indication: FIBROMYALGIA
     Dosage: TAKE 1 TABLET TAKEN UNDER THE TONGUE
     Dates: start: 20130905, end: 20130924
  3. BUPRENORPHINE [Suspect]
     Indication: ARTHRITIS
     Dosage: TAKE 1 TABLET TAKEN UNDER THE TONGUE
     Dates: start: 20130905, end: 20130924

REACTIONS (3)
  - Abdominal discomfort [None]
  - Nausea [None]
  - Product quality issue [None]
